FAERS Safety Report 22165933 (Version 1)
Quarter: 2023Q2

REPORT INFORMATION
  Report Type: Spontaneous
  Country: JP (occurrence: JP)
  Receive Date: 20230403
  Receipt Date: 20230403
  Transmission Date: 20230722
  Serious: Yes (Hospitalization)
  Sender: FDA-Public Use
  Company Number: JP-TEVA-2023-JP-000760J

PATIENT
  Age: 34 Year
  Sex: Female

DRUGS (1)
  1. VERAPAMIL HYDROCHLORIDE [Suspect]
     Active Substance: VERAPAMIL HYDROCHLORIDE
     Indication: Product used for unknown indication
     Dosage: DOSAGE IS UNKNOWN
     Route: 065
     Dates: start: 202207, end: 202207

REACTIONS (1)
  - Drug eruption [Unknown]
